FAERS Safety Report 24656383 (Version 1)
Quarter: 2024Q4

REPORT INFORMATION
  Report Type: Spontaneous
  Country: NL (occurrence: NL)
  Receive Date: 20241124
  Receipt Date: 20241124
  Transmission Date: 20250114
  Serious: Yes (Hospitalization)
  Sender: BOEHRINGER INGELHEIM
  Company Number: NL-BoehringerIngelheim-2024-BI-063381

PATIENT
  Age: 68 Year
  Sex: Female
  Weight: 73 kg

DRUGS (5)
  1. NINTEDANIB [Suspect]
     Active Substance: NINTEDANIB
     Indication: Idiopathic interstitial pneumonia
     Dates: start: 202209
  2. METHYLPREDNISOLONE [Concomitant]
     Active Substance: METHYLPREDNISOLONE
     Dosage: HIGH SCHEDULE
     Route: 048
  3. OXYGEN [Concomitant]
     Active Substance: OXYGEN
     Indication: Idiopathic interstitial pneumonia
  4. PREDNISONE [Concomitant]
     Active Substance: PREDNISONE
     Indication: Idiopathic interstitial pneumonia
     Dates: start: 202103
  5. PREDNISONE [Concomitant]
     Active Substance: PREDNISONE
     Dates: start: 202207

REACTIONS (7)
  - Pneumonia [Unknown]
  - Pulmonary oedema [Unknown]
  - Drug ineffective [Unknown]
  - Exercise tolerance decreased [Unknown]
  - Oxygen saturation decreased [Unknown]
  - Pulmonary fibrosis [Unknown]
  - Disease progression [Unknown]
